FAERS Safety Report 5787867-X (Version None)
Quarter: 2008Q2

REPORT INFORMATION
  Report Type: 
  Country: None (occurrence: None)
  Receive Date: 20080624
  Receipt Date: 20080624
  Transmission Date: 20081010
  Serious: No
  Sender: FDA-Public Use
  Company Number: None

PATIENT
  Age: 42 Year
  Sex: Female
  Weight: 58.0604 kg

DRUGS (1)
  1. VANCOMYCIN [Suspect]
     Indication: KNEE ARTHROPLASTY
     Dosage: 1 GRAM IV
     Route: 042
     Dates: start: 20080611

REACTIONS (4)
  - BURNING SENSATION [None]
  - ERYTHEMA [None]
  - INFUSION RELATED REACTION [None]
  - PRURITUS [None]
